FAERS Safety Report 5162842-7 (Version None)
Quarter: 2006Q4

REPORT INFORMATION
  Report Type: 
  Country: None (occurrence: None)
  Receive Date: 20061201
  Receipt Date: 20010330
  Transmission Date: 20070319
  Serious: Yes (Hospitalization)
  Sender: FDA-Public Use
  Company Number: FR-GLAXOSMITHKLINE-B0102904A

PATIENT
  Sex: Male

DRUGS (8)
  1. ZIDOVUDINE [Suspect]
     Indication: PROPHYLAXIS
     Dosage: 8MG THREE TIMES PER DAY
     Route: 048
  2. ZIDOVUDINE [Suspect]
     Indication: ANTIVIRAL PROPHYLAXIS
     Route: 065
  3. ZIDOVUDINE [Suspect]
     Indication: HIV INFECTION
     Route: 042
     Dates: start: 19981215, end: 19981215
  4. GARDENAL [Concomitant]
  5. SUBUTEX [Concomitant]
  6. THERALENE [Concomitant]
  7. PRAZEPAM [Concomitant]
  8. IRON [Concomitant]

REACTIONS (13)
  - ANAEMIA [None]
  - BLOOD LACTIC ACID INCREASED [None]
  - DRUG EXPOSURE DURING PREGNANCY [None]
  - DRUG WITHDRAWAL SYNDROME [None]
  - EYELID PTOSIS [None]
  - HYPERTONIA [None]
  - NEONATAL DISORDER [None]
  - NEUTROPENIA [None]
  - NYSTAGMUS [None]
  - PSYCHOMOTOR SKILLS IMPAIRED [None]
  - SKIN MALFORMATION [None]
  - SPEECH DISORDER DEVELOPMENTAL [None]
  - STRABISMUS [None]
